FAERS Safety Report 24175643 (Version 1)
Quarter: 2024Q3

REPORT INFORMATION
  Report Type: Spontaneous
  Country: AU (occurrence: AU)
  Receive Date: 20240805
  Receipt Date: 20240805
  Transmission Date: 20241017
  Serious: Yes (Other)
  Sender: OTSUKA
  Company Number: AU-LUNDBECK-DKLU4002121

PATIENT
  Age: 38 Year
  Sex: Female

DRUGS (7)
  1. ABILIFY [Suspect]
     Active Substance: ARIPIPRAZOLE
     Indication: Product used for unknown indication
     Dosage: 40 MG, QD
     Route: 048
     Dates: start: 202303
  2. ABILIFY MAINTENA [Suspect]
     Active Substance: ARIPIPRAZOLE
     Indication: Product used for unknown indication
     Dosage: 400 MG
     Route: 030
     Dates: start: 20230320, end: 20231020
  3. ABILIFY MAINTENA [Suspect]
     Active Substance: ARIPIPRAZOLE
     Dosage: 200 MG
     Route: 030
  4. PALIPERIDONE [Suspect]
     Active Substance: PALIPERIDONE
     Indication: Product used for unknown indication
     Dosage: UNK
     Route: 065
  5. CLOZAPINE [Suspect]
     Active Substance: CLOZAPINE
     Indication: Product used for unknown indication
     Dosage: UNK
     Route: 065
  6. NALTREXONE [Concomitant]
     Active Substance: NALTREXONE
     Indication: Alcoholism
     Dosage: UNK
     Route: 065
  7. OLANZAPINE [Concomitant]
     Active Substance: OLANZAPINE
     Indication: Product used for unknown indication
     Dosage: UNK
     Route: 065

REACTIONS (18)
  - Social anxiety disorder [Recovering/Resolving]
  - Drug intolerance [Recovered/Resolved]
  - Haematological infection [Unknown]
  - Myoclonic dystonia [Recovering/Resolving]
  - Food craving [Recovering/Resolving]
  - Migraine [Unknown]
  - Muscle twitching [Recovering/Resolving]
  - Bradycardia [Recovering/Resolving]
  - Dizziness [Recovering/Resolving]
  - Impulsive behaviour [Recovering/Resolving]
  - Restlessness [Recovering/Resolving]
  - Musculoskeletal stiffness [Unknown]
  - Weight increased [Recovering/Resolving]
  - Somnolence [Recovering/Resolving]
  - Dyskinesia [Unknown]
  - Seizure [Unknown]
  - Underdose [Unknown]
  - Overdose [Unknown]

NARRATIVE: CASE EVENT DATE: 20230301
